FAERS Safety Report 9522005 (Version 2)
Quarter: 2013Q3

REPORT INFORMATION
  Report Type: Spontaneous
  Country: US (occurrence: None)
  Receive Date: 20130905
  Receipt Date: 20130930
  Transmission Date: 20140515
  Serious: Yes (Other)
  Sender: FDA-Public Use
  Company Number: 2013037775

PATIENT
  Sex: Female
  Weight: 136.08 kg

DRUGS (17)
  1. PRIVIGEN (IMMUNE GLOBULIN INTRAVENOUS (HUMAN) 10% LIQUID) [Suspect]
     Dosage: INTRAVNEOUS (NOT OTHERWISE SPECIFIED)
     Route: 042
     Dates: start: 201304
  2. AVELOX (MOXIFLOXACIN HYDROCHLORIDE) [Concomitant]
  3. LASIX (FUROSEMIDE) [Concomitant]
  4. OXYCONTIN(OXYCODONE HYDROCHLORIDE) [Concomitant]
  5. ZANAFLEX (TIZANIDINE HYDROCHLORIDE) [Concomitant]
  6. VITAMIN D (ERGOCALCIFEROL) [Concomitant]
  7. CRESTOR (ROSUVASTATIN) [Concomitant]
  8. LISINOPRIL (LISINOPRIL) [Concomitant]
  9. NOVOLOG (INSULIN ASPART) [Concomitant]
  10. TENORMIN (ATENOLOL) [Concomitant]
  11. MAXAIR (PIRBUTEROL ACETATE) [Concomitant]
  12. FLONASE (FLUTICASONE PROPIONATE) [Concomitant]
  13. ASTELIN (AZELASTINE HYDROCHLORIDE) [Concomitant]
  14. BENADRYL (DIPHENHYDRAMINE HYDROCHLORIDE) [Concomitant]
  15. CALCIUM AND D (CALDECIUM /00439801/) [Concomitant]
  16. FISH OIL (FISH OIL) [Concomitant]
     Indication: SELECTIVE POLYSACCHARIDE ANTIBODY DEFICIENCY
  17. STOOL SOFTENER (DOCUSATE SODIUM) [Concomitant]

REACTIONS (3)
  - Infusion related reaction [None]
  - Loss of consciousness [None]
  - Blood pressure decreased [None]
